FAERS Safety Report 8266208-2 (Version None)
Quarter: 2012Q2

REPORT INFORMATION
  Report Type: 
  Country: None (occurrence: None)
  Receive Date: 20120406
  Receipt Date: 20120402
  Transmission Date: 20120825
  Serious: Yes (Other)
  Sender: FDA-Public Use
  Company Number: GB-ABBOTT-12P-167-0913242-00

PATIENT
  Sex: Male

DRUGS (1)
  1. HUMIRA [Suspect]
     Indication: ANKYLOSING SPONDYLITIS
     Route: 058
     Dates: start: 20110511

REACTIONS (3)
  - IMMUNE SYSTEM DISORDER [None]
  - INFECTIOUS MONONUCLEOSIS [None]
  - WHITE BLOOD CELL COUNT INCREASED [None]
